FAERS Safety Report 4401392-X (Version None)
Quarter: 2004Q3

REPORT INFORMATION
  Report Type: 
  Country: None (occurrence: None)
  Receive Date: 20040907
  Receipt Date: 20040413
  Transmission Date: 20050211
  Serious: No
  Sender: FDA-Public Use
  Company Number: US-BRISTOL-MYERS SQUIBB COMPANY-12559316

PATIENT
  Age: 89 Year
  Sex: Male
  Weight: 79 kg

DRUGS (8)
  1. COUMADIN [Suspect]
     Dosage: ON VARYING DOSES OF COUMADIN-CURRENTLY MON-FRI 3MG DAILY + SAT + SUN 2MG QD
     Route: 048
     Dates: start: 20030801
  2. AMIODARONE HCL [Concomitant]
     Dates: start: 20030801
  3. LANOXIN [Concomitant]
     Dates: start: 20030801
  4. LOPRESSOR [Concomitant]
     Dosage: 1 IN THE MORNING AND 1 IN THE EVENING
     Dates: start: 20030801
  5. ZOCOR [Concomitant]
     Dates: start: 20030801
  6. VITAMIN [Concomitant]
     Dates: start: 20030801
  7. FUROSEMIDE [Concomitant]
     Dates: start: 20030801
  8. PEPCID [Concomitant]
     Dates: start: 20030801

REACTIONS (1)
  - INTERNATIONAL NORMALISED RATIO ABNORMAL [None]
